FAERS Safety Report 17269343 (Version 2)
Quarter: 2020Q1

REPORT INFORMATION
  Report Type: Report from Study
  Country: CO (occurrence: CO)
  Receive Date: 20200114
  Receipt Date: 20200220
  Transmission Date: 20200409
  Serious: Yes (Hospitalization, Other)
  Sender: FDA-Public Use
  Company Number: NVSC2019CO060547

PATIENT
  Sex: Male
  Weight: 50 kg

DRUGS (2)
  1. VOTRIENT [Suspect]
     Active Substance: PAZOPANIB HYDROCHLORIDE
     Indication: RENAL CELL CARCINOMA
     Dosage: 800 MG, QD
     Route: 048
     Dates: start: 20191016
  2. PIPOTIAZINE [Concomitant]
     Active Substance: PIPOTIAZINE
     Indication: MENTAL DISORDER
     Dosage: UNK
     Route: 065

REACTIONS (4)
  - Myalgia [Not Recovered/Not Resolved]
  - Renal pain [Unknown]
  - Gallbladder disorder [Unknown]
  - Metastases to lung [Unknown]
